FAERS Safety Report 7069635-4 (Version None)
Quarter: 2010Q4

REPORT INFORMATION
  Report Type: 
  Country: None (occurrence: None)
  Receive Date: 20101028
  Receipt Date: 20100317
  Transmission Date: 20110411
  Serious: No
  Sender: FDA-Public Use
  Company Number: US-WYE-H14251910

PATIENT
  Sex: Male
  Weight: 77.18 kg

DRUGS (5)
  1. EFFEXOR [Suspect]
     Indication: DEPRESSION
     Dosage: UNKNOWN DOSE ONCE DAILY
     Route: 048
     Dates: start: 19900101
  2. EFFEXOR [Suspect]
     Dosage: HAD TO KEEP INCREASING BECAUSE HE STILL HAD DEPRESSION
     Route: 048
  3. EFFEXOR [Suspect]
     Dosage: WENT UP TO TAKING 2 PILLS TWICE DAILY
     Route: 048
     Dates: end: 20100201
  4. HYDROCHLOROTHIAZIDE [Concomitant]
  5. DEPAKOTE [Concomitant]

REACTIONS (1)
  - DRUG INEFFECTIVE [None]
